FAERS Safety Report 4364625-4 (Version None)
Quarter: 2004Q2

REPORT INFORMATION
  Report Type: 
  Country: None (occurrence: None)
  Receive Date: 20040521
  Receipt Date: 20040504
  Transmission Date: 20050107
  Serious: Yes (Hospitalization, Other)
  Sender: FDA-Public Use
  Company Number: US_0405102826

PATIENT
  Age: 70 Year
  Sex: Female
  Weight: 91 kg

DRUGS (3)
  1. HUMULIN N [Suspect]
     Dates: start: 19980101, end: 20030101
  2. HUMALOG [Suspect]
     Dosage: 21 U DAY
     Dates: start: 20030101
  3. LANTUS [Concomitant]

REACTIONS (6)
  - BLOOD GLUCOSE FLUCTUATION [None]
  - BRONCHITIS [None]
  - INJURY [None]
  - LIMB TRAUMATIC AMPUTATION [None]
  - PHARMACEUTICAL PRODUCT COMPLAINT [None]
  - SCAR [None]
